FAERS Safety Report 8426419-X (Version None)
Quarter: 2012Q2

REPORT INFORMATION
  Report Type: 
  Country: None (occurrence: None)
  Receive Date: 20120611
  Receipt Date: 20120605
  Transmission Date: 20120825
  Serious: Yes (Hospitalization)
  Sender: FDA-Public Use
  Company Number: CA-BAYER-2012-056155

PATIENT
  Age: 71 Year
  Sex: Female

DRUGS (9)
  1. SYNTHROID [Concomitant]
  2. TRILEPTAL [Concomitant]
  3. BETASERON [Suspect]
     Indication: MULTIPLE SCLEROSIS
     Dosage: 0.250 MG, UNK
     Dates: start: 20030101, end: 20120522
  4. BETASERON [Suspect]
     Dosage: 0.250 MG, UNK
     Dates: start: 20120601
  5. CALCIUM [Concomitant]
  6. JANUVIA [Concomitant]
  7. ELAVIL [Concomitant]
  8. LITHIUM [Concomitant]
  9. LIPIDIL [Concomitant]

REACTIONS (4)
  - DYSPNOEA [None]
  - CHEST PAIN [None]
  - FATIGUE [None]
  - CORONARY ARTERY DISEASE [None]
